FAERS Safety Report 4770968-2 (Version None)
Quarter: 2005Q3

REPORT INFORMATION
  Report Type: 
  Country: None (occurrence: None)
  Receive Date: 20050914
  Receipt Date: 20050825
  Transmission Date: 20060218
  Serious: Yes (Life-Threatening, Hospitalization, Other)
  Sender: FDA-Public Use
  Company Number: JP_050807399

PATIENT
  Age: 24 Year
  Sex: Female

DRUGS (4)
  1. ZYPREXA [Suspect]
     Indication: HALLUCINATION, AUDITORY
     Dosage: 10 MG DAY
     Dates: start: 20020606, end: 20020819
  2. RISPERIDONE [Concomitant]
  3. LITHIUM CARBONATE [Concomitant]
  4. LEVOMEPROMAZINE [Concomitant]

REACTIONS (22)
  - ABNORMAL BEHAVIOUR [None]
  - ALANINE AMINOTRANSFERASE INCREASED [None]
  - ANXIETY [None]
  - ASPARTATE AMINOTRANSFERASE INCREASED [None]
  - BLOOD LACTATE DEHYDROGENASE INCREASED [None]
  - CONDITION AGGRAVATED [None]
  - DRUG INEFFECTIVE [None]
  - DYSURIA [None]
  - ELECTROENCEPHALOGRAM ABNORMAL [None]
  - EXCITABILITY [None]
  - HALLUCINATIONS, MIXED [None]
  - INSOMNIA [None]
  - IRRITABILITY [None]
  - MULTIPLE SCLEROSIS [None]
  - MYDRIASIS [None]
  - NEUROLEPTIC MALIGNANT SYNDROME [None]
  - OPTIC NEURITIS RETROBULBAR [None]
  - PERSECUTORY DELUSION [None]
  - POLLAKIURIA [None]
  - PSYCHIATRIC SYMPTOM [None]
  - RESTLESSNESS [None]
  - SEDATION [None]
